FAERS Safety Report 5905497-3 (Version None)
Quarter: 2008Q4

REPORT INFORMATION
  Report Type: 
  Country: None (occurrence: None)
  Receive Date: 20081001
  Receipt Date: 20081001
  Transmission Date: 20090506
  Serious: Yes (Hospitalization)
  Sender: FDA-Public Use
  Company Number: None

PATIENT
  Sex: Male
  Weight: 73.9 kg

DRUGS (12)
  1. LENALIDOMIDE [Suspect]
     Indication: MULTIPLE MYELOMA
     Dosage: 25MG QD 21DAYS /MO. 047
     Dates: start: 20080917, end: 20080929
  2. DEXAMETHASONE [Suspect]
     Dosage: 40MG DAYS 1,8,15,+ 22 047
     Dates: start: 20080917, end: 20080924
  3. PRILSEC [Concomitant]
  4. ASPIRIN [Concomitant]
  5. CIPRO [Concomitant]
  6. ACYCLOVIR SODIUM [Concomitant]
  7. LISINOPRIL [Concomitant]
  8. SERTRALINE [Concomitant]
  9. NASONEX [Concomitant]
  10. XANAX [Concomitant]
  11. KDVR [Concomitant]
  12. SODIUM CHLORIDE INJ [Concomitant]

REACTIONS (13)
  - BACK PAIN [None]
  - BUNDLE BRANCH BLOCK RIGHT [None]
  - CONVULSION [None]
  - DIZZINESS [None]
  - DYSPNOEA [None]
  - HEADACHE [None]
  - HYPERTROPHIC CARDIOMYOPATHY [None]
  - HYPOTENSION [None]
  - LOSS OF CONSCIOUSNESS [None]
  - NAUSEA [None]
  - SYNCOPE [None]
  - TROPONIN T INCREASED [None]
  - VOMITING [None]
